FAERS Safety Report 14494031 (Version 2)
Quarter: 2018Q1

REPORT INFORMATION
  Report Type: Spontaneous
  Country: US (occurrence: US)
  Receive Date: 20180206
  Receipt Date: 20180328
  Transmission Date: 20180509
  Serious: Yes (Other)
  Sender: FDA-Public Use
  Company Number: US-PFIZER INC-2018047764

PATIENT
  Age: 60 Year
  Sex: Male

DRUGS (2)
  1. GABAPENTIN. [Suspect]
     Active Substance: GABAPENTIN
     Indication: NEUROPATHY PERIPHERAL
     Dosage: 300 MG, 3X/DAY
     Route: 048
     Dates: start: 2008
  2. GABAPENTIN. [Suspect]
     Active Substance: GABAPENTIN
     Dosage: 2400 MG, DAILY (300MG CAPSULES, 2 IN THE MORNING, 3 IN THE EVENING, AND 3 AT BEDTIME)
     Route: 048
     Dates: end: 2013

REACTIONS (2)
  - Drug ineffective for unapproved indication [Unknown]
  - Multiple sclerosis [Unknown]

NARRATIVE: CASE EVENT DATE: 2008
